FAERS Safety Report 10442757 (Version 3)
Quarter: 2014Q4

REPORT INFORMATION
  Report Type: Spontaneous
  Country: IT (occurrence: None)
  Receive Date: 20140908
  Receipt Date: 20141001
  Transmission Date: 20150528
  Serious: Yes (Other)
  Sender: FDA-Public Use
  Company Number: ADR-2014-01617

PATIENT
  Sex: Male

DRUGS (1)
  1. BACLOFEN. [Suspect]
     Active Substance: BACLOFEN

REACTIONS (6)
  - Device dislocation [None]
  - Muscle spasticity [None]
  - Therapeutic response decreased [None]
  - Dystonia [None]
  - Underdose [None]
  - Medical device complication [None]
